FAERS Safety Report 10027711 (Version 1)
Quarter: 2014Q1

REPORT INFORMATION
  Report Type: Spontaneous
  Country: GB (occurrence: None)
  Receive Date: 20140318
  Receipt Date: 20140318
  Transmission Date: 20141002
  Serious: Yes (Life-Threatening)
  Sender: FDA-Public Use
  Company Number: 2232810

PATIENT
  Age: 72 Year
  Sex: Male
  Weight: 128 kg

DRUGS (4)
  1. GENTAMICIN SULFATE [Suspect]
     Indication: GASTROINTESTINAL SURGERY
     Route: 042
     Dates: start: 20140205
  2. AMOXICILLIN [Suspect]
     Indication: GASTROINTESTINAL SURGERY
     Route: 042
     Dates: start: 20140205
  3. METRONIDAZOLE [Suspect]
     Indication: GASTROINTESTINAL SURGERY
     Route: 042
     Dates: start: 20140205
  4. ONDANSETRON [Suspect]
     Indication: GASTROINTESTINAL SURGERY
     Route: 042
     Dates: start: 20140205

REACTIONS (1)
  - Anaphylactic shock [None]
